FAERS Safety Report 8991380 (Version 2)
Quarter: 2013Q1

REPORT INFORMATION
  Report Type: Spontaneous
  Country: JP (occurrence: JP)
  Receive Date: 20121229
  Receipt Date: 20130208
  Transmission Date: 20140127
  Serious: Yes (Other)
  Sender: FDA-Public Use
  Company Number: JP-MERCK-1212JPN010773

PATIENT
  Age: 73 Year
  Sex: Female

DRUGS (1)
  1. REMERON [Suspect]
     Dosage: 45 MG, UNK
     Route: 048

REACTIONS (3)
  - Pulmonary embolism [Unknown]
  - Deep vein thrombosis [Unknown]
  - Pneumonia aspiration [Unknown]
